FAERS Safety Report 25681747 (Version 1)
Quarter: 2025Q3

REPORT INFORMATION
  Report Type: Spontaneous
  Country: EU (occurrence: EU)
  Receive Date: 20250814
  Receipt Date: 20250814
  Transmission Date: 20251020
  Serious: Yes (Other)
  Sender: PFIZER
  Company Number: None

PATIENT
  Age: 32 Year
  Sex: Female
  Weight: 74 kg

DRUGS (1)
  1. CYTOTEC [Suspect]
     Active Substance: MISOPROSTOL
     Indication: Labour induction
     Route: 048
     Dates: start: 20210207, end: 20210208

REACTIONS (8)
  - Maternal exposure during delivery [Unknown]
  - Puerperal pyrexia [Recovered/Resolved]
  - Amniotic cavity infection [Recovered/Resolved]
  - Traumatic delivery [Unknown]
  - Uterine tachysystole [Recovered/Resolved]
  - Hypertension [Recovered/Resolved]
  - Mental disorder [Unknown]
  - Product use in unapproved indication [Unknown]

NARRATIVE: CASE EVENT DATE: 20210207
